FAERS Safety Report 6443674-6 (Version None)
Quarter: 2009Q4

REPORT INFORMATION
  Report Type: 
  Country: None (occurrence: None)
  Receive Date: 20091117
  Receipt Date: 20091110
  Transmission Date: 20100525
  Serious: Yes (Life-Threatening)
  Sender: FDA-Public Use
  Company Number: PHHY2009BR49215

PATIENT
  Age: 77 Year
  Sex: Female
  Weight: 70 kg

DRUGS (4)
  1. DIOVAN HCT [Suspect]
     Indication: HYPERTENSION
     Dosage: 160/12.5 MG, 1 TABLET IN THE MORNING
  2. DIOVAN HCT [Suspect]
     Dosage: 320/25 MG
     Dates: start: 20090901
  3. RASILEZ [Suspect]
     Dosage: 300 MG, UNK
  4. NOVALGINA [Concomitant]
     Indication: HEADACHE
     Dosage: 30-35 DROS A DAY WHEN REQUIRED

REACTIONS (9)
  - BURNING SENSATION [None]
  - CATARACT [None]
  - ERYTHEMA [None]
  - EYE DISORDER [None]
  - FEELING ABNORMAL [None]
  - HEADACHE [None]
  - OROPHARYNGEAL PAIN [None]
  - SKIN PLAQUE [None]
  - THROAT IRRITATION [None]
